FAERS Safety Report 7592516-4 (Version None)
Quarter: 2011Q3

REPORT INFORMATION
  Report Type: 
  Country: None (occurrence: None)
  Receive Date: 20110706
  Receipt Date: 20110627
  Transmission Date: 20111222
  Serious: Yes (Other)
  Sender: FDA-Public Use
  Company Number: AT-PURDUE-DEU-2011-0007505

PATIENT
  Sex: Male

DRUGS (1)
  1. MORPHINE [Suspect]
     Indication: DRUG ABUSER

REACTIONS (2)
  - AGGRESSION [None]
  - DRUG DEPENDENCE [None]
